FAERS Safety Report 5909418-9 (Version None)
Quarter: 2008Q4

REPORT INFORMATION
  Report Type: 
  Country: None (occurrence: None)
  Receive Date: 20081006
  Receipt Date: 20080924
  Transmission Date: 20090506
  Serious: Yes (Hospitalization)
  Sender: FDA-Public Use
  Company Number: JP-PFIZER INC-2008081222

PATIENT
  Age: 81 Year
  Sex: Female

DRUGS (5)
  1. HALCION [Suspect]
     Dosage: DAILY DOSE:.5MG
  2. ETHYL LOFLAZEPATE [Suspect]
     Dosage: DAILY DOSE:2MG
  3. FLUNITRAZEPAM [Suspect]
     Dosage: DAILY DOSE:2MG
  4. ZOPICLONE [Suspect]
     Dosage: DAILY DOSE:10MG
  5. VALPROATE SODIUM [Suspect]
     Dosage: DAILY DOSE:400MG

REACTIONS (1)
  - DELIRIUM [None]
